FAERS Safety Report 25191434 (Version 1)
Quarter: 2025Q2

REPORT INFORMATION
  Report Type: Spontaneous
  Country: US (occurrence: None)
  Receive Date: 20250411
  Receipt Date: 20250411
  Transmission Date: 20250717
  Serious: Yes (Other)
  Sender: FDA-CTU
  Company Number: None

PATIENT
  Age: 37 Year
  Sex: Male
  Weight: 72.6 kg

DRUGS (3)
  1. CEFTRIAXONE [Suspect]
     Active Substance: CEFTRIAXONE
     Dates: start: 20250405, end: 20250405
  2. cefTRIAXone 2 gram recon soln [Concomitant]
     Dates: start: 20250405, end: 20250405
  3. sodium chloride 0.9 % solution [Concomitant]
     Dates: start: 20250405, end: 20250405

REACTIONS (2)
  - Erythema [None]
  - Urticaria [None]

NARRATIVE: CASE EVENT DATE: 20250405
